FAERS Safety Report 21914231 (Version 2)
Quarter: 2023Q1

REPORT INFORMATION
  Report Type: Report from Study
  Country: US (occurrence: US)
  Receive Date: 20230126
  Receipt Date: 20230130
  Transmission Date: 20230418
  Serious: Yes (Hospitalization)
  Sender: FDA-Public Use
  Company Number: US-BIOGEN-2023BI01182809

PATIENT
  Sex: Female

DRUGS (3)
  1. VUMERITY [Suspect]
     Active Substance: DIROXIMEL FUMARATE
     Indication: Multiple sclerosis
     Route: 050
  2. VUMERITY [Suspect]
     Active Substance: DIROXIMEL FUMARATE
     Route: 050
  3. CHARCOAL [Suspect]
     Active Substance: ACTIVATED CHARCOAL
     Indication: Drug detoxification
     Route: 050

REACTIONS (4)
  - Dyspnoea [Recovered/Resolved]
  - Gait inability [Unknown]
  - Dysstasia [Unknown]
  - Diarrhoea [Recovered/Resolved]
